FAERS Safety Report 5042045-7 (Version None)
Quarter: 2006Q2

REPORT INFORMATION
  Report Type: 
  Country: None (occurrence: None)
  Receive Date: 20060627
  Receipt Date: 20060612
  Transmission Date: 20061013
  Serious: Yes (Hospitalization)
  Sender: FDA-Public Use
  Company Number: TRP_0771_2006

PATIENT
  Age: 54 Year
  Sex: Female
  Weight: 46.7205 kg

DRUGS (4)
  1. RIBASPHERE [Suspect]
     Indication: HEPATITIS C
     Dosage: VAR QDAY PO
     Route: 048
     Dates: start: 20051101
  2. PEGASYS [Suspect]
     Indication: HEPATITIS C
     Dosage: 180 MCG QWK SC
     Route: 058
     Dates: start: 20051101
  3. PEGASYS [Suspect]
     Indication: HEPATITIS C
     Dosage: 135 MCG QWK SC
     Route: 058
  4. ASCORBIC ACID [Concomitant]

REACTIONS (21)
  - ABDOMINAL PAIN [None]
  - ABDOMINAL PAIN UPPER [None]
  - ANAEMIA [None]
  - CHEST PAIN [None]
  - CYSTITIS [None]
  - DEHYDRATION [None]
  - DYSURIA [None]
  - HEADACHE [None]
  - INCONTINENCE [None]
  - INTRACRANIAL ANEURYSM [None]
  - NAUSEA [None]
  - NEUTROPENIA [None]
  - NONSPECIFIC REACTION [None]
  - OESOPHAGEAL PAIN [None]
  - ORAL DISCOMFORT [None]
  - RETINAL EXUDATES [None]
  - RETINOPATHY [None]
  - SINUSITIS [None]
  - VOMITING [None]
  - WEIGHT DECREASED [None]
  - WHITE BLOOD CELL COUNT DECREASED [None]
